FAERS Safety Report 9368818 (Version 2)
Quarter: 2013Q4

REPORT INFORMATION
  Report Type: Spontaneous
  Country: ES (occurrence: ES)
  Receive Date: 20130626
  Receipt Date: 20131001
  Transmission Date: 20140711
  Serious: Yes (Death, Life-Threatening, Hospitalization, Disabling)
  Sender: FDA-Public Use
  Company Number: ES-B.I. PHARMACEUTICALS,INC./RIDGEFIELD-2013-ES-00303ES

PATIENT
  Age: 60 Year
  Sex: Male

DRUGS (2)
  1. PRADAXA [Suspect]
     Indication: CARDIAC FLUTTER
     Dosage: 220 MG
     Route: 048
     Dates: start: 20130401, end: 20130616
  2. PRADAXA [Suspect]
     Dosage: 220 MG
     Route: 048
     Dates: start: 20130617, end: 20130617

REACTIONS (2)
  - Ischaemic stroke [Fatal]
  - Hemiplegia [Unknown]
